FAERS Safety Report 4679141-X (Version None)
Quarter: 2005Q2

REPORT INFORMATION
  Report Type: 
  Country: None (occurrence: None)
  Receive Date: 20050527
  Receipt Date: 20050202
  Transmission Date: 20051028
  Serious: No
  Sender: FDA-Public Use
  Company Number: PHEH2005US01552

PATIENT
  Age: 72 Year
  Sex: Female

DRUGS (1)
  1. ZELNORM [Suspect]
     Indication: IRRITABLE BOWEL SYNDROME
     Dosage: 6 MG, BID,  ORAL
     Route: 048
     Dates: start: 20040101, end: 20050123

REACTIONS (3)
  - ABDOMINAL DISTENSION [None]
  - CONDITION AGGRAVATED [None]
  - DRY MOUTH [None]
